FAERS Safety Report 25474466 (Version 1)
Quarter: 2025Q2

REPORT INFORMATION
  Report Type: Spontaneous
  Country: US (occurrence: US)
  Receive Date: 20250624
  Receipt Date: 20250624
  Transmission Date: 20250717
  Serious: No
  Sender: BAYER HEALTHCARE PHARMACEUTICALS INC.
  Company Number: US-BAYER-2025A078560

PATIENT
  Age: 69 Year
  Sex: Female

DRUGS (1)
  1. KERENDIA [Suspect]
     Active Substance: FINERENONE
     Dosage: 20 MG, QD
     Dates: start: 202505, end: 20250610

REACTIONS (3)
  - Illness [None]
  - Rash [None]
  - Pollakiuria [None]

NARRATIVE: CASE EVENT DATE: 20250610
